FAERS Safety Report 10185873 (Version 7)
Quarter: 2016Q1

REPORT INFORMATION
  Report Type: Report from Study
  Country: US (occurrence: US)
  Receive Date: 20140521
  Receipt Date: 20160229
  Transmission Date: 20160525
  Serious: Yes (Death, Hospitalization, Other)
  Sender: FDA-Public Use
  Company Number: US-ACTELION-A-US2014-98960

PATIENT
  Age: 4 Year
  Sex: Female

DRUGS (3)
  1. TRACLEER [Suspect]
     Active Substance: BOSENTAN
     Indication: PULMONARY ARTERIAL HYPERTENSION
     Dosage: 31.25 MG, BID
     Route: 048
     Dates: start: 20140417, end: 20151215
  2. SILDENAFIL. [Concomitant]
     Active Substance: SILDENAFIL
  3. ENOXAPARIN [Concomitant]
     Active Substance: ENOXAPARIN

REACTIONS (10)
  - Nervous system disorder [Fatal]
  - Hydrocephalus [Recovered/Resolved]
  - Pulmonary hypertensive crisis [Recovering/Resolving]
  - Sepsis [Not Recovered/Not Resolved]
  - Encephalitis [Unknown]
  - Endotracheal intubation [Recovering/Resolving]
  - Liver function test increased [Fatal]
  - Shunt malfunction [Unknown]
  - Enterococcal bacteraemia [Unknown]
  - CNS ventriculitis [Unknown]

NARRATIVE: CASE EVENT DATE: 20140419
